FAERS Safety Report 7680714-0 (Version None)
Quarter: 2011Q3

REPORT INFORMATION
  Report Type: 
  Country: None (occurrence: None)
  Receive Date: 20110812
  Receipt Date: 20110810
  Transmission Date: 20111222
  Serious: Yes (Life-Threatening, Other)
  Sender: FDA-Public Use
  Company Number: JP-BRISTOL-MYERS SQUIBB COMPANY-15943137

PATIENT
  Age: 66 Year
  Sex: Female

DRUGS (2)
  1. TAXOL [Suspect]
     Indication: OVARIAN CANCER
     Dosage: ROUTE:DN
     Route: 041
     Dates: end: 20110201
  2. PARAPLATIN [Suspect]
     Indication: OVARIAN CANCER
     Dosage: ROUTE:DN
     Route: 041
     Dates: end: 20110201

REACTIONS (2)
  - DIARRHOEA [None]
  - RENAL FAILURE ACUTE [None]
